FAERS Safety Report 6526649-8 (Version None)
Quarter: 2010Q1

REPORT INFORMATION
  Report Type: 
  Country: None (occurrence: None)
  Receive Date: 20100105
  Receipt Date: 20091228
  Transmission Date: 20100710
  Serious: Yes (Other)
  Sender: FDA-Public Use
  Company Number: CN-ROCHE-677297

PATIENT

DRUGS (3)
  1. CAPECITABINE [Suspect]
     Dosage: DOSE GIVEN AT 12 HOURS INTERVASL ON DAYS 1-14 AND 22-35
     Route: 048
  2. CAPECITABINE [Suspect]
     Dosage: DOSE ESCALATED
     Route: 048
  3. DDP [Suspect]
     Dosage: DOSE: 10 MG/M2 ON DAYS 1-5 AND 22-26, FORM: INFUSION
     Route: 040

REACTIONS (3)
  - HAEMATOTOXICITY [None]
  - OESOPHAGITIS [None]
  - PLATELET TOXICITY [None]
